FAERS Safety Report 5218240-0 (Version None)
Quarter: 2007Q1

REPORT INFORMATION
  Report Type: 
  Country: None (occurrence: None)
  Receive Date: 20061130
  Receipt Date: 20060421
  Transmission Date: 20070707
  Serious: Yes (Hospitalization)
  Sender: FDA-Public Use
  Company Number: US_0509121721

PATIENT
  Sex: Female
  Weight: 63.5 kg

DRUGS (4)
  1. ZYPREXA [Suspect]
     Dosage: ORAL
     Route: 048
     Dates: start: 20010101, end: 20020101
  2. DEPAKOTE [Concomitant]
  3. REMERON [Concomitant]
  4. PREDNISOLONE [Concomitant]

REACTIONS (3)
  - OBESITY [None]
  - PANCREATITIS [None]
  - VISION BLURRED [None]
